FAERS Safety Report 24779752 (Version 2)
Quarter: 2025Q1

REPORT INFORMATION
  Report Type: Report from Study
  Country: US (occurrence: US)
  Receive Date: 20241226
  Receipt Date: 20250111
  Transmission Date: 20250409
  Serious: Yes (Hospitalization, Other)
  Sender: ABBVIE
  Company Number: US-ABBVIE-6062553

PATIENT
  Age: 55 Year
  Sex: Male
  Weight: 65.77 kg

DRUGS (4)
  1. SKYRIZI [Suspect]
     Active Substance: RISANKIZUMAB-RZAA
     Indication: Psoriasis
     Dosage: UNKNOWN
     Route: 058
     Dates: start: 20231120
  2. ASPIRIN [Concomitant]
     Active Substance: ASPIRIN
     Indication: Thrombosis
  3. METFORMIN [Concomitant]
     Active Substance: METFORMIN HYDROCHLORIDE
     Indication: Diabetes mellitus
  4. FARXIGA [Concomitant]
     Active Substance: DAPAGLIFLOZIN PROPANEDIOL
     Indication: Diabetes mellitus

REACTIONS (8)
  - Meniscus injury [Recovering/Resolving]
  - Arthritis [Recovering/Resolving]
  - Post procedural complication [Not Recovered/Not Resolved]
  - Procedural pain [Not Recovered/Not Resolved]
  - Musculoskeletal disorder [Recovered/Resolved]
  - Arthralgia [Recovering/Resolving]
  - Contusion [Recovered/Resolved]
  - Exostosis [Recovering/Resolving]

NARRATIVE: CASE EVENT DATE: 20240101
